FAERS Safety Report 7312970-2 (Version None)
Quarter: 2011Q1

REPORT INFORMATION
  Report Type: 
  Country: None (occurrence: None)
  Receive Date: 20110224
  Receipt Date: 20110214
  Transmission Date: 20110831
  Serious: Yes (Hospitalization)
  Sender: FDA-Public Use
  Company Number: US-ELI_LILLY_AND_COMPANY-US201010002842

PATIENT
  Age: 72 Year
  Sex: Female
  Weight: 88.435 kg

DRUGS (14)
  1. INSULIN [Concomitant]
     Indication: BLOOD GLUCOSE ABNORMAL
  2. PLAVIX [Concomitant]
  3. BISOPROLOL FUMARATE [Concomitant]
  4. HUMALOG [Suspect]
     Indication: TYPE 1 DIABETES MELLITUS
     Dosage: UNK, AS NEEDED
  5. ASPIRIN [Concomitant]
  6. HYZAAR [Concomitant]
  7. LANTUS [Concomitant]
  8. SALAGEN [Concomitant]
  9. PROZAC [Concomitant]
  10. MACRODANTIN [Concomitant]
  11. ZETIA [Concomitant]
  12. CORTISONE [Concomitant]
     Indication: BACK PAIN
  13. NOVOLOG [Concomitant]
  14. AMITRIPTYLINE HCL [Concomitant]

REACTIONS (9)
  - FEELING ABNORMAL [None]
  - INJURY ASSOCIATED WITH DEVICE [None]
  - MUSCLE STRAIN [None]
  - BLOOD GLUCOSE INCREASED [None]
  - BACK DISORDER [None]
  - FALL [None]
  - DEVICE FAILURE [None]
  - ARTHRALGIA [None]
  - MALAISE [None]
